FAERS Safety Report 25877100 (Version 3)
Quarter: 2025Q4

REPORT INFORMATION
  Report Type: Spontaneous
  Country: JP (occurrence: JP)
  Receive Date: 20251003
  Receipt Date: 20251209
  Transmission Date: 20260118
  Serious: Yes (Hospitalization, Other)
  Sender: MYLAN
  Company Number: JP-MYE-2025M1083832AA

PATIENT
  Sex: Male

DRUGS (36)
  1. CYCLOSPORINE [Suspect]
     Active Substance: CYCLOSPORINE
     Indication: Dermatomyositis
  2. CYCLOSPORINE [Suspect]
     Active Substance: CYCLOSPORINE
     Route: 065
  3. CYCLOSPORINE [Suspect]
     Active Substance: CYCLOSPORINE
     Route: 065
  4. CYCLOSPORINE [Suspect]
     Active Substance: CYCLOSPORINE
  5. PREDNISOLONE [Suspect]
     Active Substance: PREDNISOLONE
     Indication: Dermatomyositis
     Dosage: 2 MILLIGRAM/KILOGRAM, QD
  6. PREDNISOLONE [Suspect]
     Active Substance: PREDNISOLONE
     Dosage: 2 MILLIGRAM/KILOGRAM, QD
  7. PREDNISOLONE [Suspect]
     Active Substance: PREDNISOLONE
     Dosage: 2 MILLIGRAM/KILOGRAM, QD
     Route: 048
  8. PREDNISOLONE [Suspect]
     Active Substance: PREDNISOLONE
     Dosage: 2 MILLIGRAM/KILOGRAM, QD
     Route: 048
  9. PREDNISOLONE [Suspect]
     Active Substance: PREDNISOLONE
     Dosage: 0.57 MILLIGRAM/KILOGRAM, QD
  10. PREDNISOLONE [Suspect]
     Active Substance: PREDNISOLONE
     Dosage: 0.57 MILLIGRAM/KILOGRAM, QD
  11. PREDNISOLONE [Suspect]
     Active Substance: PREDNISOLONE
     Dosage: 0.57 MILLIGRAM/KILOGRAM, QD
     Route: 048
  12. PREDNISOLONE [Suspect]
     Active Substance: PREDNISOLONE
     Dosage: 0.57 MILLIGRAM/KILOGRAM, QD
     Route: 048
  13. PREDNISOLONE [Suspect]
     Active Substance: PREDNISOLONE
     Dosage: 0.25 MILLIGRAM/KILOGRAM, QD
  14. PREDNISOLONE [Suspect]
     Active Substance: PREDNISOLONE
     Dosage: 0.25 MILLIGRAM/KILOGRAM, QD
     Route: 048
  15. PREDNISOLONE [Suspect]
     Active Substance: PREDNISOLONE
     Dosage: 0.25 MILLIGRAM/KILOGRAM, QD
  16. PREDNISOLONE [Suspect]
     Active Substance: PREDNISOLONE
     Dosage: 0.25 MILLIGRAM/KILOGRAM, QD
     Route: 048
  17. MYCOPHENOLATE MOFETIL [Suspect]
     Active Substance: MYCOPHENOLATE MOFETIL
     Indication: Dermatomyositis
  18. MYCOPHENOLATE MOFETIL [Suspect]
     Active Substance: MYCOPHENOLATE MOFETIL
     Route: 065
  19. MYCOPHENOLATE MOFETIL [Suspect]
     Active Substance: MYCOPHENOLATE MOFETIL
     Route: 065
  20. MYCOPHENOLATE MOFETIL [Suspect]
     Active Substance: MYCOPHENOLATE MOFETIL
  21. METHOTREXATE [Suspect]
     Active Substance: METHOTREXATE
     Indication: Dermatomyositis
  22. METHOTREXATE [Suspect]
     Active Substance: METHOTREXATE
     Route: 065
  23. METHOTREXATE [Suspect]
     Active Substance: METHOTREXATE
     Route: 065
  24. METHOTREXATE [Suspect]
     Active Substance: METHOTREXATE
  25. IMMUNE GLOBULIN NOS [Suspect]
     Active Substance: IMMUNE GLOBULIN NOS
     Indication: Dermatomyositis
     Dosage: HIGH DOSE, 400 MG/KG/DOSE FOR 5 DAYS
  26. IMMUNE GLOBULIN NOS [Suspect]
     Active Substance: IMMUNE GLOBULIN NOS
     Dosage: HIGH DOSE, 400 MG/KG/DOSE FOR 5 DAYS
     Route: 065
  27. IMMUNE GLOBULIN NOS [Suspect]
     Active Substance: IMMUNE GLOBULIN NOS
     Dosage: HIGH DOSE, 400 MG/KG/DOSE FOR 5 DAYS
     Route: 065
  28. IMMUNE GLOBULIN NOS [Suspect]
     Active Substance: IMMUNE GLOBULIN NOS
     Dosage: HIGH DOSE, 400 MG/KG/DOSE FOR 5 DAYS
  29. ALENDRONIC ACID [Suspect]
     Active Substance: ALENDRONIC ACID
     Indication: Dermatomyositis
  30. ALENDRONIC ACID [Suspect]
     Active Substance: ALENDRONIC ACID
     Route: 042
  31. ALENDRONIC ACID [Suspect]
     Active Substance: ALENDRONIC ACID
     Route: 042
  32. ALENDRONIC ACID [Suspect]
     Active Substance: ALENDRONIC ACID
  33. ABATACEPT [Suspect]
     Active Substance: ABATACEPT
     Indication: Dermatomyositis
  34. ABATACEPT [Suspect]
     Active Substance: ABATACEPT
     Route: 065
  35. ABATACEPT [Suspect]
     Active Substance: ABATACEPT
     Route: 065
  36. ABATACEPT [Suspect]
     Active Substance: ABATACEPT

REACTIONS (6)
  - COVID-19 [Unknown]
  - Myositis [Unknown]
  - Disease progression [Unknown]
  - Rebound effect [Unknown]
  - Off label use [Unknown]
  - Drug ineffective [Unknown]
